FAERS Safety Report 13424013 (Version 2)
Quarter: 2017Q2

REPORT INFORMATION
  Report Type: Spontaneous
  Country: None (occurrence: JP)
  Receive Date: 20170410
  Receipt Date: 20170427
  Transmission Date: 20170830
  Serious: Yes (Other)
  Sender: FDA-Public Use
  Company Number: JP-ALLERGAN-1713115US

PATIENT
  Sex: Female

DRUGS (1)
  1. MILNACIPRAN - BP [Suspect]
     Active Substance: MILNACIPRAN
     Indication: DEPRESSION
     Dosage: UNK
     Route: 048

REACTIONS (1)
  - Triple negative breast cancer [Not Recovered/Not Resolved]
